FAERS Safety Report 6305321-3 (Version None)
Quarter: 2009Q3

REPORT INFORMATION
  Report Type: 
  Country: None (occurrence: None)
  Receive Date: 20090807
  Receipt Date: 20090724
  Transmission Date: 20100115
  Serious: Yes (Other)
  Sender: FDA-Public Use
  Company Number: 8049748

PATIENT
  Age: 6 Year
  Sex: Female
  Weight: 10 kg

DRUGS (2)
  1. KEPPRA [Suspect]
     Indication: EPILEPSY
     Dosage: 500 MG 2/D PO
     Route: 048
     Dates: start: 20080201, end: 20090601
  2. TOPIRAMATE [Concomitant]

REACTIONS (2)
  - CIRCADIAN RHYTHM SLEEP DISORDER [None]
  - PSYCHOMOTOR HYPERACTIVITY [None]
